FAERS Safety Report 9414689 (Version 1)
Quarter: 2013Q3

REPORT INFORMATION
  Report Type: Spontaneous
  Country: US (occurrence: US)
  Receive Date: 20130723
  Receipt Date: 20130723
  Transmission Date: 20140515
  Serious: Yes (Death, Other)
  Sender: FDA-Public Use
  Company Number: US-INCYTE CORPORATION-2013IN001152

PATIENT
  Age: 81 Year
  Sex: Female

DRUGS (2)
  1. JAKAFI [Suspect]
     Indication: MYELOFIBROSIS
     Dosage: 5 MG, BID
     Route: 048
     Dates: start: 20130331
  2. JAKAFI [Suspect]
     Dosage: 15 MG, BID
     Route: 048

REACTIONS (3)
  - Disease progression [Fatal]
  - White blood cell count increased [Not Recovered/Not Resolved]
  - Anaemia [Unknown]
